FAERS Safety Report 22811303 (Version 4)
Quarter: 2024Q2

REPORT INFORMATION
  Report Type: Spontaneous
  Country: US (occurrence: US)
  Receive Date: 20230810
  Receipt Date: 20240524
  Transmission Date: 20240716
  Serious: Yes (Life-Threatening, Other)
  Sender: FDA-Public Use
  Company Number: US-PFIZER INC-PV202300136306

PATIENT
  Age: 60 Year
  Sex: Female
  Weight: 38 kg

DRUGS (3)
  1. BUPIVACAINE HYDROCHLORIDE [Suspect]
     Active Substance: BUPIVACAINE HYDROCHLORIDE\BUPIVACAINE HYDROCHLORIDE ANHYDROUS
     Indication: General anaesthesia
     Dosage: 60ML OF 0.25% (150MG)
  2. BUPIVACAINE [Suspect]
     Active Substance: BUPIVACAINE
     Indication: General anaesthesia
     Dosage: 20ML (266MG)
  3. LIDOCAINE [Concomitant]
     Active Substance: LIDOCAINE
     Dosage: 50 MG PRIOR TO INTUBATION
     Route: 042

REACTIONS (3)
  - Local anaesthetic systemic toxicity [Recovered/Resolved]
  - Seizure [Recovered/Resolved]
  - Hypotension [Recovered/Resolved]
